APPROVED DRUG PRODUCT: MOXIFLOXACIN HYDROCHLORIDE
Active Ingredient: MOXIFLOXACIN HYDROCHLORIDE
Strength: EQ 400MG BASE
Dosage Form/Route: TABLET;ORAL
Application: A204836 | Product #001 | TE Code: AB
Applicant: HETERO LABS LTD UNIT V
Approved: Mar 2, 2023 | RLD: No | RS: No | Type: RX